FAERS Safety Report 20932678 (Version 8)
Quarter: 2022Q3

REPORT INFORMATION
  Report Type: Spontaneous
  Country: US (occurrence: US)
  Receive Date: 20220608
  Receipt Date: 20220808
  Transmission Date: 20221026
  Serious: No
  Sender: FDA-Public Use
  Company Number: US-AMGEN-USASP2022096347

PATIENT
  Age: 74 Year
  Sex: Male
  Weight: 88.45 kg

DRUGS (3)
  1. NEULASTA [Suspect]
     Active Substance: PEGFILGRASTIM
     Indication: Prophylaxis
     Dosage: UNK
     Route: 065
  2. DOXORUBICIN [Concomitant]
     Active Substance: DOXORUBICIN
     Indication: Leiomyosarcoma metastatic
     Dosage: UNK
  3. DACARBAZINE [Concomitant]
     Active Substance: DACARBAZINE
     Indication: Leiomyosarcoma metastatic
     Dosage: UNK

REACTIONS (2)
  - Device malfunction [Recovered/Resolved]
  - Device difficult to use [Recovered/Resolved]

NARRATIVE: CASE EVENT DATE: 20220531
